FAERS Safety Report 4754629-1 (Version None)
Quarter: 2005Q3

REPORT INFORMATION
  Report Type: 
  Country: None (occurrence: None)
  Receive Date: 20050829
  Receipt Date: 20050818
  Transmission Date: 20060218
  Serious: Yes (Hospitalization)
  Sender: FDA-Public Use
  Company Number: FR-GLAXOSMITHKLINE-B0391275A

PATIENT
  Age: 64 Year
  Sex: Female

DRUGS (15)
  1. PAROXETINE HCL [Suspect]
     Dosage: 20MG PER DAY
     Route: 048
     Dates: end: 20050308
  2. PRAVASTATIN [Suspect]
     Dosage: 20MG PER DAY
     Route: 048
     Dates: end: 20050304
  3. PLAVIX [Suspect]
     Indication: ARTERIAL STENOSIS
     Dosage: 75MG PER DAY
     Route: 048
     Dates: start: 20050218, end: 20050303
  4. CLONAZEPAM [Suspect]
     Indication: NEUROPATHY PERIPHERAL
     Dosage: 7IU PER DAY
     Route: 048
     Dates: end: 20050304
  5. TRIATEC [Suspect]
     Dosage: 5MG TWICE PER DAY
     Route: 048
     Dates: end: 20050307
  6. UN ALPHA [Concomitant]
     Dosage: 1IU PER DAY
     Route: 048
     Dates: end: 20050311
  7. FUROSEMIDE [Concomitant]
     Route: 048
  8. EUPRESSYL [Concomitant]
     Dosage: 30MG TWICE PER DAY
     Route: 048
  9. NICARDIPINE HCL [Concomitant]
     Dosage: 50MG TWICE PER DAY
     Route: 048
  10. MIXTARD HUMAN 70/30 [Concomitant]
     Dosage: 2INJ PER DAY
     Route: 058
  11. TEMESTA 2.5 [Concomitant]
     Dosage: 2.5MG PER DAY
     Route: 048
  12. NOCTAMIDE [Concomitant]
     Dosage: 2MG PER DAY
     Route: 048
  13. LEVOTHYROXINE SODIUM [Concomitant]
     Dosage: 125MCG PER DAY
     Route: 048
  14. PANTOPRAZOLE SODIUM [Concomitant]
     Route: 048
  15. PARACETAMOL [Concomitant]
     Dosage: 2TAB THREE TIMES PER DAY
     Route: 048

REACTIONS (4)
  - BLOOD CREATINE PHOSPHOKINASE INCREASED [None]
  - HAEMATOMA [None]
  - MUSCLE HAEMORRHAGE [None]
  - RHABDOMYOLYSIS [None]
